FAERS Safety Report 7139012-6 (Version None)
Quarter: 2010Q4

REPORT INFORMATION
  Report Type: 
  Country: None (occurrence: None)
  Receive Date: 20101206
  Receipt Date: 20101124
  Transmission Date: 20110411
  Serious: Yes (Death, Hospitalization)
  Sender: FDA-Public Use
  Company Number: A0897565A

PATIENT
  Age: 60 Year
  Sex: Male

DRUGS (1)
  1. AVANDIA [Suspect]
     Dosage: 8MG PER DAY
     Dates: start: 19970101, end: 20000101

REACTIONS (4)
  - CARDIAC DISORDER [None]
  - CARDIOMEGALY [None]
  - DEATH [None]
  - MYOCARDIAL INFARCTION [None]
